APPROVED DRUG PRODUCT: CHOLINE C-11
Active Ingredient: CHOLINE C-11
Strength: 4-33.1mCi/ML
Dosage Form/Route: INJECTABLE;INTRAVENOUS
Application: A206319 | Product #001 | TE Code: AP
Applicant: DECATUR MEMORIAL HOSP
Approved: Nov 13, 2015 | RLD: No | RS: No | Type: RX